FAERS Safety Report 8949959 (Version 1)
Quarter: 2012Q4

REPORT INFORMATION
  Report Type: 
  Country: GB (occurrence: GB)
  Receive Date: 20121205
  Receipt Date: 20121205
  Transmission Date: 20130627
  Serious: Yes (Disabling)
  Sender: FDA-Public Use
  Company Number: GB-009507513-1212GBR000953

PATIENT
  Age: 69 Year
  Sex: Female

DRUGS (6)
  1. SITAGLIPTIN PHOSPHATE [Suspect]
     Dosage: 100 mg, UNK
     Route: 048
     Dates: start: 20111128, end: 20121023
  2. ASPIRIN [Concomitant]
     Dosage: UNK
     Dates: start: 20030103
  3. ATORVASTATIN [Concomitant]
     Dosage: 20 mg, UNK
     Route: 048
     Dates: start: 20040512
  4. MAXITRAM [Concomitant]
     Dosage: UNK
     Dates: start: 20120426
  5. PIOGLITAZONE HYDROCHLORIDE [Concomitant]
     Dosage: 15 mg, UNK
     Route: 048
     Dates: start: 20120710
  6. RAMIPRIL [Concomitant]
     Dosage: 2.5 mg, UNK
     Route: 048
     Dates: start: 201011

REACTIONS (1)
  - Drug eruption [Recovering/Resolving]
